FAERS Safety Report 13672801 (Version 2)
Quarter: 2017Q3

REPORT INFORMATION
  Report Type: Report from Study
  Country: None (occurrence: CA)
  Receive Date: 20170621
  Receipt Date: 20170919
  Transmission Date: 20171127
  Serious: Yes (Other)
  Sender: FDA-Public Use
  Company Number: CA-ABBVIE-16K-028-1680114-00

PATIENT
  Sex: Female

DRUGS (1)
  1. HUMIRA [Suspect]
     Active Substance: ADALIMUMAB
     Indication: CROHN^S DISEASE
     Route: 058
     Dates: start: 20080427

REACTIONS (9)
  - Skin lesion [Not Recovered/Not Resolved]
  - Abscess [Not Recovered/Not Resolved]
  - Vulval disorder [Not Recovered/Not Resolved]
  - Wound secretion [Not Recovered/Not Resolved]
  - Groin pain [Not Recovered/Not Resolved]
  - Drug ineffective [Unknown]
  - Uveitis [Recovered/Resolved]
  - Hidradenitis [Not Recovered/Not Resolved]
  - Hidradenitis [Not Recovered/Not Resolved]

NARRATIVE: CASE EVENT DATE: 2016
